FAERS Safety Report 6000110-1 (Version None)
Quarter: 2008Q4

REPORT INFORMATION
  Report Type: 
  Country: None (occurrence: None)
  Receive Date: 20081211
  Receipt Date: 20080723
  Transmission Date: 20090506
  Serious: No
  Sender: FDA-Public Use
  Company Number: US023536

PATIENT
  Age: 83 Year
  Sex: Male
  Weight: 81.1939 kg

DRUGS (2)
  1. TREANDA [Suspect]
     Dosage: 100 MG/M2 DAYS 1 + 2 EVERY 28 DAYS INTRAVENOUS
     Route: 042
  2. ALLOPURINOL [Concomitant]

REACTIONS (1)
  - RASH MORBILLIFORM [None]
